FAERS Safety Report 8668639 (Version 2)
Quarter: 2012Q4

REPORT INFORMATION
  Report Type: 
  Country: US (occurrence: US)
  Receive Date: 20120717
  Receipt Date: 20121102
  Transmission Date: 20130627
  Serious: No
  Sender: FDA-Public Use
  Company Number: US-ASTRAZENECA-2012SE45868

PATIENT
  Age: 70 Year
  Sex: Female
  Weight: 79.4 kg

DRUGS (4)
  1. PRILOSEC [Suspect]
     Indication: GASTROOESOPHAGEAL REFLUX DISEASE
     Route: 048
     Dates: start: 2002
  2. PRILOSEC [Suspect]
     Indication: ACQUIRED OESOPHAGEAL WEB
     Route: 048
     Dates: start: 2002
  3. PRILOSEC [Suspect]
     Indication: GASTROOESOPHAGEAL REFLUX DISEASE
     Route: 048
  4. PRILOSEC [Suspect]
     Indication: ACQUIRED OESOPHAGEAL WEB
     Route: 048

REACTIONS (7)
  - Tinnitus [Recovered/Resolved]
  - Tic [Recovering/Resolving]
  - Abnormal dreams [Not Recovered/Not Resolved]
  - Gastrooesophageal reflux disease [Unknown]
  - Headache [Not Recovered/Not Resolved]
  - Dyspepsia [Unknown]
  - Drug dose omission [Unknown]
